FAERS Safety Report 6197770-1 (Version None)
Quarter: 2009Q2

REPORT INFORMATION
  Report Type: 
  Country: None (occurrence: None)
  Receive Date: 20090521
  Receipt Date: 20090511
  Transmission Date: 20091009
  Serious: Yes (Hospitalization)
  Sender: FDA-Public Use
  Company Number: FR-AMGEN-QUU346390

PATIENT
  Sex: Male

DRUGS (10)
  1. NEUPOGEN [Suspect]
     Indication: CHEMOTHERAPY
     Route: 058
     Dates: start: 20090419
  2. NEULASTA [Suspect]
     Indication: CHEMOTHERAPY
     Route: 058
     Dates: start: 20090316
  3. SOLU-MEDROL [Concomitant]
     Dates: start: 20090419
  4. GRANOCYTE [Concomitant]
     Dates: start: 20090421
  5. RITUXIMAB [Concomitant]
     Dates: start: 20090311
  6. CISPLATIN [Concomitant]
     Dates: start: 20090311
  7. CYTARABINE [Concomitant]
     Dates: start: 20090311
  8. DEXAMETHASONE 4MG TAB [Concomitant]
     Dates: start: 20090311
  9. KYTRIL [Concomitant]
     Dates: start: 20090311
  10. EMEND [Concomitant]
     Dates: start: 20090311

REACTIONS (3)
  - ANAPHYLACTOID REACTION [None]
  - MALAISE [None]
  - RASH ERYTHEMATOUS [None]
